FAERS Safety Report 7700683-4 (Version None)
Quarter: 2011Q3

REPORT INFORMATION
  Report Type: 
  Country: None (occurrence: None)
  Receive Date: 20110822
  Receipt Date: 20110816
  Transmission Date: 20111222
  Serious: Yes (Other)
  Sender: FDA-Public Use
  Company Number: DE-PFIZER INC-2011189503

PATIENT
  Age: 59 Year
  Sex: Male

DRUGS (2)
  1. SUNITINIB MALATE [Suspect]
     Dosage: 50 MG/DAY
     Dates: start: 20070601
  2. SUNITINIB MALATE [Suspect]
     Dosage: 37.5 MG/DAY
     Route: 048
     Dates: start: 20070601

REACTIONS (1)
  - OSTEONECROSIS [None]
